FAERS Safety Report 8109502-8 (Version None)
Quarter: 2012Q1

REPORT INFORMATION
  Report Type: 
  Country: None (occurrence: None)
  Receive Date: 20120202
  Receipt Date: 20120112
  Transmission Date: 20120608
  Serious: No
  Sender: FDA-Public Use
  Company Number: US-AMGEN-USASP2011068791

PATIENT
  Age: 63 Year
  Sex: Female

DRUGS (3)
  1. TREXALL [Concomitant]
     Dosage: 7.5 MG, QWK
     Dates: start: 20100601
  2. ENBREL [Suspect]
     Indication: RHEUMATOID ARTHRITIS
     Dosage: 50 MG, QWK
     Dates: start: 20111130
  3. ENBREL [Suspect]
     Indication: ARTHRITIS

REACTIONS (13)
  - INJECTION SITE PRURITUS [None]
  - MALAISE [None]
  - ALOPECIA [None]
  - INJECTION SITE ERYTHEMA [None]
  - INJECTION SITE REACTION [None]
  - RHEUMATOID ARTHRITIS [None]
  - HYPOGLYCAEMIA [None]
  - DRUG INEFFECTIVE [None]
  - SINUSITIS [None]
  - INJECTION SITE PAIN [None]
  - INJECTION SITE SWELLING [None]
  - INJECTION SITE WARMTH [None]
  - FEELING ABNORMAL [None]
